FAERS Safety Report 9958410 (Version 2)
Quarter: 2014Q1

REPORT INFORMATION
  Report Type: Report from Study
  Country: CA (occurrence: CA)
  Receive Date: 20140305
  Receipt Date: 20140305
  Transmission Date: 20141002
  Serious: Yes (Other)
  Sender: FDA-Public Use
  Company Number: CA-ROCHE-1349262

PATIENT
  Sex: Female

DRUGS (2)
  1. RANIBIZUMAB [Suspect]
     Indication: AGE-RELATED MACULAR DEGENERATION
     Route: 050
     Dates: start: 201310
  2. RANIBIZUMAB [Suspect]
     Route: 050
     Dates: start: 20140204

REACTIONS (3)
  - Eye haemorrhage [Unknown]
  - Injection site scab [Unknown]
  - Drug ineffective [Unknown]
